FAERS Safety Report 11395496 (Version 1)
Quarter: 2015Q3

REPORT INFORMATION
  Report Type: Spontaneous
  Country: US (occurrence: None)
  Receive Date: 20150818
  Receipt Date: 20150818
  Transmission Date: 20151125
  Serious: Yes (Death, Hospitalization)
  Sender: FDA-Public Use
  Company Number: None

PATIENT
  Age: 80 Year
  Sex: Female
  Weight: 63.5 kg

DRUGS (5)
  1. CEFEPIME [Suspect]
     Active Substance: CEFEPIME HYDROCHLORIDE
     Indication: URINARY TRACT INFECTION
     Dosage: INTO A VEIN
     Route: 042
     Dates: start: 20150724, end: 20150729
  2. MUCINEX [Concomitant]
     Active Substance: GUAIFENESIN
  3. PANTOPRAZOLE [Concomitant]
     Active Substance: PANTOPRAZOLE SODIUM
  4. INSULIN [Concomitant]
     Active Substance: INSULIN NOS
  5. ADVAIR HFA [Concomitant]
     Active Substance: FLUTICASONE PROPIONATE\SALMETEROL XINAFOATE

REACTIONS (5)
  - Unresponsive to stimuli [None]
  - Muscle twitching [None]
  - Confusional state [None]
  - Contraindicated drug administered [None]
  - Seizure [None]

NARRATIVE: CASE EVENT DATE: 20150804
